FAERS Safety Report 8795753 (Version 3)
Quarter: 2013Q1

REPORT INFORMATION
  Report Type: Spontaneous
  Country: IE (occurrence: IE)
  Receive Date: 20120919
  Receipt Date: 20130129
  Transmission Date: 20140127
  Serious: Yes (Hospitalization)
  Sender: FDA-Public Use
  Company Number: IE-ABBOTT-12P-163-0979818-00

PATIENT
  Age: 50 Year
  Sex: Male

DRUGS (8)
  1. HUMIRA [Suspect]
     Indication: CROHN^S DISEASE
     Route: 058
     Dates: start: 20120807
  2. HUMIRA [Suspect]
     Route: 058
     Dates: start: 20120815
  3. HUMIRA [Suspect]
     Dosage: 80MG ONCE
     Route: 058
     Dates: start: 20120821
  4. HUMIRA [Suspect]
     Dosage: 40MG
     Route: 058
     Dates: start: 20120904, end: 20120918
  5. HUMIRA [Suspect]
     Dosage: 80MG ONCE
     Route: 058
     Dates: start: 20120925
  6. HUMIRA [Suspect]
     Dosage: 40MG
     Route: 058
  7. INVESTIGATIONAL PRODUCT [Suspect]
     Indication: CROHN^S DISEASE
     Dosage: POWDER FOR SOLUTION
     Route: 058
     Dates: start: 20120517, end: 20120517
  8. INVESTIGATIONAL PRODUCT [Suspect]
     Route: 058
     Dates: start: 20120710, end: 20120710

REACTIONS (11)
  - Chills [Recovering/Resolving]
  - Viral infection [Recovered/Resolved]
  - Headache [Recovering/Resolving]
  - Back pain [Recovering/Resolving]
  - Nausea [Recovering/Resolving]
  - Diarrhoea [Not Recovered/Not Resolved]
  - Abdominal pain [Not Recovered/Not Resolved]
  - Crohn^s disease [Not Recovered/Not Resolved]
  - Flushing [Recovering/Resolving]
  - Hyperhidrosis [Recovering/Resolving]
  - Musculoskeletal stiffness [Recovering/Resolving]
